FAERS Safety Report 9216179 (Version 2)
Quarter: 2013Q2

REPORT INFORMATION
  Report Type: Spontaneous
  Country: US (occurrence: None)
  Receive Date: 20130402
  Receipt Date: 20130419
  Transmission Date: 20140414
  Serious: Yes (Hospitalization)
  Sender: FDA-Public Use
  Company Number: US-ZYDUS-001059

PATIENT
  Age: 65 Year
  Sex: Female

DRUGS (3)
  1. PROMETHAZINE (PROMETHAZINE) [Suspect]
     Indication: PROCEDURAL NAUSEA
  2. ANAESTHETICS (ANAESTHETICS) [Suspect]
     Indication: LAPAROSCOPIC SURGERY
  3. DIPHENHYDRAMINE [Suspect]
     Indication: PAIN IN EXTREMITY
     Dosage: INTRAVENOUS (NOT OTHERWISE SPECIFIED)?
     Route: 042

REACTIONS (2)
  - Restless legs syndrome [None]
  - Condition aggravated [None]
